FAERS Safety Report 9444696 (Version 1)
Quarter: 2013Q3

REPORT INFORMATION
  Report Type: Spontaneous
  Country: FR (occurrence: FR)
  Receive Date: 20130807
  Receipt Date: 20130807
  Transmission Date: 20140515
  Serious: Yes (Life-Threatening, Hospitalization)
  Sender: FDA-Public Use
  Company Number: FR-PFIZER INC-2013223445

PATIENT
  Age: 72 Year
  Sex: Female

DRUGS (8)
  1. ARACYTINE [Suspect]
     Indication: ACUTE MYELOID LEUKAEMIA
     Dosage: 50 MG, EVERY 12 HOURS FOR 4 DAYS, 8 COURSES TOTAL
     Route: 058
     Dates: start: 19880609, end: 199106
  2. PURINETHOL [Suspect]
     Indication: ACUTE MYELOID LEUKAEMIA
     Dosage: 2 DF, DAILY
     Route: 048
     Dates: start: 19880609, end: 199106
  3. TRAMADOL HYDROCHLORIDE [Concomitant]
     Dosage: 50 UNK, 2X/DAY IN THE MORNING AND IN THE EVENING
  4. AMLODIPINE [Concomitant]
     Dosage: 10 MG, 1X/DAY IN THE MORNING
  5. FUROSEMIDE [Concomitant]
     Dosage: 10 MG, 1X/DAY IN THE MORNING
  6. DIFFU K [Concomitant]
     Dosage: 1 DF, 3X/DAY (IN THE MORNING, AT NOON AND IN THE EVENING)
  7. LEVOTHYROX [Concomitant]
     Dosage: 50 UG, 1X/DAY IN THE MORNING
  8. ESOMEPRAZOLE [Concomitant]
     Dosage: 40 UNK, 1X/DAY IN THE EVENING

REACTIONS (1)
  - Transitional cell carcinoma [Not Recovered/Not Resolved]
